FAERS Safety Report 5281671-7 (Version None)
Quarter: 2007Q1

REPORT INFORMATION
  Report Type: 
  Country: None (occurrence: None)
  Receive Date: 20070330
  Receipt Date: 20070316
  Transmission Date: 20070707
  Serious: Yes (Other)
  Sender: FDA-Public Use
  Company Number: PHEH2007US02873

PATIENT
  Age: 37 Year
  Sex: Female

DRUGS (2)
  1. GLEEVEC [Suspect]
     Indication: CHRONIC MYELOID LEUKAEMIA
     Dosage: 400 MG, QD
     Route: 048
     Dates: start: 20060808, end: 20070222
  2. INSULIN [Concomitant]
     Indication: DIABETES MELLITUS INSULIN-DEPENDENT
     Route: 058

REACTIONS (8)
  - BLINDNESS [None]
  - DIABETIC RETINOPATHY [None]
  - EXOPHTHALMOS [None]
  - LASER THERAPY [None]
  - RETINAL HAEMORRHAGE [None]
  - VISION BLURRED [None]
  - VITRECTOMY [None]
  - VITREOUS HAEMORRHAGE [None]
